FAERS Safety Report 10466756 (Version 1)
Quarter: 2014Q3

REPORT INFORMATION
  Report Type: Spontaneous
  Country: ES (occurrence: ES)
  Receive Date: 20140922
  Receipt Date: 20140922
  Transmission Date: 20150326
  Serious: Yes (Hospitalization)
  Sender: FDA-Public Use
  Company Number: ES-UCBSA-2014011947

PATIENT
  Age: 70 Year
  Sex: Female

DRUGS (5)
  1. KEPPRA [Suspect]
     Active Substance: LEVETIRACETAM
     Indication: CONVULSION
     Dosage: 1000 MG, 2X/DAY (BID)
     Dates: start: 2012
  2. BONVIVA [Concomitant]
     Active Substance: IBANDRONATE SODIUM
     Dosage: 150MG STRENGTH
  3. IDEOS UNIDIA [Concomitant]
     Dosage: 100MG STRENGTH
  4. GLUCOSAMINA [Concomitant]
     Dosage: 100MG STRENGTH
  5. ATORVASTATINA [Concomitant]
     Active Substance: ATORVASTATIN
     Dosage: 10MG STRENGTH

REACTIONS (1)
  - Intentional self-injury [Not Recovered/Not Resolved]

NARRATIVE: CASE EVENT DATE: 20140901
